FAERS Safety Report 5605920-8 (Version None)
Quarter: 2008Q1

REPORT INFORMATION
  Report Type: 
  Country: None (occurrence: None)
  Receive Date: 20080124
  Receipt Date: 20080124
  Transmission Date: 20080703
  Serious: Yes (Other)
  Sender: FDA-Public Use
  Company Number: None

PATIENT
  Age: 59 Year
  Sex: Female
  Weight: 74.8435 kg

DRUGS (1)
  1. MUCINEX [Suspect]
     Indication: NASAL CONGESTION
     Dosage: 2 SRAYS EACH NOSTRIL EVERY 12 HOURS NASAL
     Route: 045
     Dates: start: 20071225, end: 20080108

REACTIONS (4)
  - DRUG WITHDRAWAL SYNDROME [None]
  - FEELING ABNORMAL [None]
  - PHARYNGEAL DISORDER [None]
  - REBOUND EFFECT [None]
